FAERS Safety Report 6939184-X (Version None)
Quarter: 2010Q3

REPORT INFORMATION
  Report Type: 
  Country: None (occurrence: None)
  Receive Date: 20100824
  Receipt Date: 20100816
  Transmission Date: 20110219
  Serious: Yes (Hospitalization)
  Sender: FDA-Public Use
  Company Number: JP-BRISTOL-MYERS SQUIBB COMPANY-15243702

PATIENT
  Age: 63 Year
  Sex: Female

DRUGS (2)
  1. BRIPLATIN [Suspect]
     Indication: GASTRIC CANCER
     Route: 041
  2. TS-1 [Suspect]
     Indication: GASTRIC CANCER
     Route: 048

REACTIONS (4)
  - GASTROINTESTINAL HAEMORRHAGE [None]
  - PANCREATIC PSEUDOCYST [None]
  - PANCREATITIS [None]
  - PANCYTOPENIA [None]
